FAERS Safety Report 9437034 (Version 2)
Quarter: 2013Q3

REPORT INFORMATION
  Report Type: Spontaneous
  Country: CN (occurrence: CN)
  Receive Date: 20130802
  Receipt Date: 20130806
  Transmission Date: 20140515
  Serious: Yes (Other)
  Sender: FDA-Public Use
  Company Number: CN-PFIZER INC-2013221665

PATIENT
  Age: 71 Year
  Sex: Female
  Weight: 63 kg

DRUGS (3)
  1. PHARMORUBICIN [Suspect]
     Indication: BREAST CANCER
     Dosage: 120 MG, 1X/DAY
     Route: 041
     Dates: start: 20121108, end: 20121108
  2. PHARMORUBICIN [Suspect]
     Dosage: 120 MG, 1X/DAY
     Route: 041
     Dates: start: 20121108, end: 20121108
  3. CYCLOPHOSPHAMIDE [Suspect]
     Indication: BREAST CANCER
     Dosage: 800 MG, UNK
     Route: 042
     Dates: start: 20121108, end: 20121108

REACTIONS (2)
  - Agranulocytosis [Recovering/Resolving]
  - White blood cell count decreased [Recovering/Resolving]
